FAERS Safety Report 4585292-0 (Version None)
Quarter: 2005Q1

REPORT INFORMATION
  Report Type: 
  Country: None (occurrence: None)
  Receive Date: 20050214
  Receipt Date: 20041223
  Transmission Date: 20050727
  Serious: Yes (Hospitalization, Other)
  Sender: FDA-Public Use
  Company Number: 2004110289

PATIENT
  Age: 75 Year
  Sex: Female
  Weight: 85.7298 kg

DRUGS (2)
  1. BEXTRA [Suspect]
     Indication: OSTEOARTHRITIS
     Dosage: 10 MG (10 MG, 1 IN 1 D), ORAL
     Route: 048
     Dates: start: 20030201, end: 20040813
  2. BISELECT (BISOPROLOL FUMARATE, HYDROCHLOROTHIAZIDE0 [Concomitant]

REACTIONS (11)
  - BLOOD GLUCOSE INCREASED [None]
  - CHONDROPATHY [None]
  - DIABETES MELLITUS [None]
  - DIZZINESS [None]
  - FEELING COLD [None]
  - HEADACHE [None]
  - HYPOTHERMIA [None]
  - LABORATORY TEST ABNORMAL [None]
  - MEDICATION ERROR [None]
  - RENAL FUNCTION TEST ABNORMAL [None]
  - VERTIGO [None]
